FAERS Safety Report 7412157-9 (Version None)
Quarter: 2011Q2

REPORT INFORMATION
  Report Type: 
  Country: None (occurrence: None)
  Receive Date: 20110413
  Receipt Date: 20110411
  Transmission Date: 20111010
  Serious: Yes (Other)
  Sender: FDA-Public Use
  Company Number: AU-PFIZER INC-2011080598

PATIENT
  Age: 57 Year
  Sex: Female

DRUGS (5)
  1. CHAMPIX [Suspect]
     Indication: TOBACCO USER
     Dosage: UNK
     Dates: start: 20110101, end: 20110117
  2. NEXIUM [Concomitant]
     Dosage: UNK
  3. NEULACTIL [Concomitant]
     Dosage: UNK
  4. ALCOHOL [Concomitant]
     Dosage: UNK
  5. AROPAX [Concomitant]
     Dosage: UNK

REACTIONS (3)
  - DIARRHOEA [None]
  - TREMOR [None]
  - SEROTONIN SYNDROME [None]
